FAERS Safety Report 5875416-7 (Version None)
Quarter: 2008Q3

REPORT INFORMATION
  Report Type: 
  Country: None (occurrence: None)
  Receive Date: 20080909
  Receipt Date: 20080829
  Transmission Date: 20090109
  Serious: Yes (Hospitalization)
  Sender: FDA-Public Use
  Company Number: FR-PURDUE-GBR_2008_0004380

PATIENT
  Age: 83 Year
  Sex: Male

DRUGS (9)
  1. MORPHINE [Suspect]
     Indication: CANCER PAIN
     Dosage: 30 MG, BID
     Route: 048
     Dates: start: 20080716, end: 20080719
  2. TAREG [Concomitant]
     Indication: HYPERTENSION
     Dosage: 1 UNK, DAILY
     Route: 048
     Dates: end: 20080719
  3. LOXEN [Concomitant]
     Indication: HYPERTENSION
     Dosage: 50 MG, BID
     Route: 048
     Dates: end: 20080721
  4. FLUDEX [Concomitant]
     Dosage: 1.5 MG, BID
     Route: 048
     Dates: end: 20080721
  5. ASPEGIC 325 [Concomitant]
     Dosage: 100 MG, DAILY
     Route: 065
  6. DEROXAT [Concomitant]
     Dosage: 30 MG, DAILY
     Route: 048
     Dates: end: 20080719
  7. PROSCAR [Concomitant]
     Dosage: 1 UNK, DAILY
     Route: 048
     Dates: end: 20080719
  8. HAVLANE [Concomitant]
     Dosage: 1 UNK, DAILY
     Route: 048
     Dates: end: 20080718
  9. MORPHINE [Suspect]
     Indication: PAIN
     Dosage: 5 MG, DAILY
     Route: 048
     Dates: start: 20080712, end: 20080715

REACTIONS (3)
  - CONFUSIONAL STATE [None]
  - CONSTIPATION [None]
  - DISORIENTATION [None]
